FAERS Safety Report 7820778-4 (Version None)
Quarter: 2011Q4

REPORT INFORMATION
  Report Type: 
  Country: None (occurrence: None)
  Receive Date: 20111018
  Receipt Date: 20111011
  Transmission Date: 20120403
  Serious: Yes (Other)
  Sender: FDA-Public Use
  Company Number: US-BRISTOL-MYERS SQUIBB COMPANY-16091613

PATIENT
  Age: 47 Year
  Sex: Male
  Weight: 78 kg

DRUGS (10)
  1. IPILIMUMAB [Suspect]
     Indication: MALIGNANT MELANOMA
     Dosage: LAST DOSE:26AUG2011 C4 DELAYED BY 7 DAYS
     Route: 042
     Dates: start: 20110715, end: 20110826
  2. LEUKINE [Suspect]
     Indication: MALIGNANT MELANOMA
     Dosage: LAST DOSE:08SEP2011 C4: REDUCED BY 50% DUE TO HEADACHES; TOTAL 1750 ADMINISTERED
     Route: 058
     Dates: start: 20110715, end: 20111006
  3. CIALIS [Concomitant]
  4. GRANISETRON [Concomitant]
  5. ASPIRIN [Concomitant]
  6. SIMVASTATIN [Concomitant]
  7. OMEGA 3 FATTY ACID [Concomitant]
  8. CHOLECALCIFEROL [Concomitant]
  9. COMPAZINE [Concomitant]
  10. VICODIN [Concomitant]

REACTIONS (2)
  - ALANINE AMINOTRANSFERASE INCREASED [None]
  - HEADACHE [None]
